FAERS Safety Report 7916901-3 (Version None)
Quarter: 2011Q4

REPORT INFORMATION
  Report Type: 
  Country: None (occurrence: None)
  Receive Date: 20111116
  Receipt Date: 20111111
  Transmission Date: 20120403
  Serious: No
  Sender: FDA-Public Use
  Company Number: US-B.I. PHARMACEUTICALS,INC./RIDGEFIELD-2011-BP-26055BP

PATIENT
  Sex: Male

DRUGS (8)
  1. FERROUS SULFATE TAB [Concomitant]
     Indication: ROUTINE HEALTH MAINTENANCE
  2. CALCIUM CARBONATE [Concomitant]
     Indication: ROUTINE HEALTH MAINTENANCE
  3. CYANOCOBALAMIN [Concomitant]
     Indication: ROUTINE HEALTH MAINTENANCE
     Route: 048
  4. POTASSIUM CHLORIDE [Concomitant]
     Indication: BLOOD POTASSIUM DECREASED
     Dosage: 30 MEQ
     Route: 048
  5. SPIRIVA [Suspect]
     Indication: CHRONIC OBSTRUCTIVE PULMONARY DISEASE
     Dosage: 18 MCG
     Route: 055
     Dates: start: 20110601
  6. LISINOPRIL [Concomitant]
     Indication: HYPERTENSION
     Dosage: 40 MG
     Route: 048
     Dates: start: 20110601
  7. MELOXICAM [Concomitant]
     Dosage: 15 MG
     Route: 048
  8. MOMETASONE FUROATE [Concomitant]
     Dosage: 2 PUF
     Route: 055

REACTIONS (3)
  - DIZZINESS [None]
  - ASTHENIA [None]
  - DECREASED APPETITE [None]
